FAERS Safety Report 12670009 (Version 3)
Quarter: 2016Q4

REPORT INFORMATION
  Report Type: Spontaneous
  Country: FR (occurrence: FR)
  Receive Date: 20160821
  Receipt Date: 20161125
  Transmission Date: 20170207
  Serious: Yes (Hospitalization, Other)
  Sender: FDA-Public Use
  Company Number: FR-AMGEN-FRASP2016106853

PATIENT
  Age: 82 Year
  Sex: Male
  Weight: 81.5 kg

DRUGS (2)
  1. XGEVA [Suspect]
     Active Substance: DENOSUMAB
     Indication: METASTASES TO BONE
  2. XGEVA [Suspect]
     Active Substance: DENOSUMAB
     Indication: PROSTATE CANCER
     Dosage: UNK
     Route: 065
     Dates: start: 20160713, end: 201608

REACTIONS (23)
  - Renal disorder [Unknown]
  - Musculoskeletal stiffness [Unknown]
  - Weight decreased [Unknown]
  - Renal failure [Unknown]
  - Mass [Unknown]
  - Arthralgia [Unknown]
  - Diarrhoea [Recovered/Resolved]
  - Vertigo [Unknown]
  - Pyrexia [Recovering/Resolving]
  - Decreased appetite [Unknown]
  - Eating disorder [Unknown]
  - Jaw disorder [Unknown]
  - Lung disorder [Unknown]
  - Dry mouth [Unknown]
  - Local swelling [Unknown]
  - Eye discharge [Unknown]
  - Chromaturia [Unknown]
  - Fatigue [Unknown]
  - Dyspnoea [Unknown]
  - Respiratory failure [Unknown]
  - Eye pruritus [Unknown]
  - Malaise [Unknown]
  - Pain [Not Recovered/Not Resolved]

NARRATIVE: CASE EVENT DATE: 20160722
